FAERS Safety Report 5001768-6 (Version None)
Quarter: 2006Q2

REPORT INFORMATION
  Report Type: 
  Country: None (occurrence: None)
  Receive Date: 20060512
  Receipt Date: 20060512
  Transmission Date: 20061013
  Serious: Yes (Life-Threatening, Hospitalization)
  Sender: FDA-Public Use
  Company Number: None

PATIENT
  Age: 73 Year
  Sex: Male
  Weight: 97 kg

DRUGS (3)
  1. DEPODUR [Suspect]
     Indication: PROCEDURAL PAIN
     Dosage: 12.5 MG ONCE EPIDURAL
     Route: 008
     Dates: start: 20060503, end: 20060503
  2. BUPIVACAINE [Concomitant]
  3. DEXTROSE 8.25% [Concomitant]

REACTIONS (2)
  - OXYGEN SATURATION DECREASED [None]
  - SOMNOLENCE [None]
